FAERS Safety Report 11108013 (Version 1)
Quarter: 2015Q2

REPORT INFORMATION
  Report Type: Spontaneous
  Country: US (occurrence: US)
  Receive Date: 20150512
  Receipt Date: 20150512
  Transmission Date: 20150821
  Serious: No
  Sender: FDA-Public Use
  Company Number: US-BAYER-2015-202514

PATIENT
  Sex: Female

DRUGS (2)
  1. TRAMADOL [Concomitant]
     Active Substance: TRAMADOL
     Dosage: UNK
  2. ALEVE [Suspect]
     Active Substance: NAPROXEN SODIUM
     Dosage: 2 DF, PRN
     Route: 048
     Dates: start: 2013

REACTIONS (1)
  - Medication error [Unknown]

NARRATIVE: CASE EVENT DATE: 2013
